FAERS Safety Report 9362395 (Version 1)
Quarter: 2013Q2

REPORT INFORMATION
  Report Type: Spontaneous
  Country: US (occurrence: US)
  Receive Date: 20130622
  Receipt Date: 20130622
  Transmission Date: 20140414
  Serious: No
  Sender: FDA-Public Use
  Company Number: US-US-EMD SERONO, INC.-7209852

PATIENT
  Age: 24 Year
  Sex: Female
  Weight: 77 kg

DRUGS (1)
  1. REBIF [Suspect]
     Indication: MULTIPLE SCLEROSIS
     Route: 058
     Dates: start: 20120806

REACTIONS (6)
  - Dizziness [Unknown]
  - Blister [Unknown]
  - Abdominal pain upper [Unknown]
  - Influenza like illness [Unknown]
  - Injection site swelling [Unknown]
  - Injection site erythema [Unknown]
